FAERS Safety Report 4353323-9 (Version None)
Quarter: 2004Q2

REPORT INFORMATION
  Report Type: 
  Country: None (occurrence: None)
  Receive Date: 20040504
  Receipt Date: 20040504
  Transmission Date: 20050107
  Serious: No
  Sender: FDA-Public Use
  Company Number: None

PATIENT
  Age: 24 Year
  Sex: Female
  Weight: 56.6996 kg

DRUGS (1)
  1. CIPRO XR [Suspect]
     Indication: URINARY TRACT INFECTION
     Dosage: 1000 MG DAILY ORAL
     Route: 048
     Dates: start: 20040201, end: 20040205

REACTIONS (19)
  - ANOREXIA [None]
  - ANXIETY [None]
  - BURNING SENSATION [None]
  - CLOSTRIDIUM COLITIS [None]
  - DEPERSONALISATION [None]
  - DEPRESSION [None]
  - DIFFICULTY IN WALKING [None]
  - DYSGEUSIA [None]
  - DYSPNOEA [None]
  - FATIGUE [None]
  - HYPERACUSIS [None]
  - INSOMNIA [None]
  - MUSCULAR WEAKNESS [None]
  - NAUSEA [None]
  - PALPITATIONS [None]
  - PANIC ATTACK [None]
  - TREMOR [None]
  - VISUAL DISTURBANCE [None]
  - WEIGHT DECREASED [None]
